FAERS Safety Report 19981323 (Version 1)
Quarter: 2021Q4

REPORT INFORMATION
  Report Type: Spontaneous
  Country: US (occurrence: US)
  Receive Date: 20211022
  Receipt Date: 20211022
  Transmission Date: 20220303
  Serious: Yes (Hospitalization)
  Sender: FDA-Public Use
  Company Number: US-BIOVITRUM-2021US9285

PATIENT
  Sex: Male

DRUGS (2)
  1. SYNAGIS [Suspect]
     Active Substance: PALIVIZUMAB
     Indication: Antiviral prophylaxis
     Route: 030
     Dates: start: 20210714
  2. TRACLEER [Concomitant]
     Active Substance: BOSENTAN
     Dosage: ONE FOURTH OF A 32 MG TABLET PER DOSE (8 MG)

REACTIONS (1)
  - Dyspnoea [Unknown]
